FAERS Safety Report 4445668-9 (Version None)
Quarter: 2004Q3

REPORT INFORMATION
  Report Type: 
  Country: None (occurrence: None)
  Receive Date: 20040910
  Receipt Date: 20040625
  Transmission Date: 20050211
  Serious: Yes (Hospitalization, Other)
  Sender: FDA-Public Use
  Company Number: GB-AMGEN-US082173

PATIENT
  Sex: Female
  Weight: 68 kg

DRUGS (9)
  1. ENBREL [Suspect]
     Indication: RHEUMATOID ARTHRITIS
     Route: 058
     Dates: start: 20030902, end: 20040524
  2. PREDNISOLONE [Concomitant]
     Dates: start: 20040101
  3. NABUMETONE [Concomitant]
  4. CO-PROXAMOL [Concomitant]
  5. ESTRADIOL [Concomitant]
  6. AMITRIPTYLINE HCL [Concomitant]
  7. LANSOPRAZOLE [Concomitant]
  8. TRAMADOL HCL [Concomitant]
  9. CALCICHEW [Concomitant]

REACTIONS (3)
  - MONONEUROPATHY [None]
  - RHEUMATOID VASCULITIS [None]
  - SENSORY LOSS [None]
